FAERS Safety Report 24590258 (Version 2)
Quarter: 2025Q3

REPORT INFORMATION
  Report Type: Spontaneous
  Country: EU (occurrence: EU)
  Receive Date: 20241107
  Receipt Date: 20250922
  Transmission Date: 20251020
  Serious: Yes (Hospitalization, Other)
  Sender: PFIZER
  Company Number: None

PATIENT
  Age: 19 Year
  Sex: Female
  Weight: 68.5 kg

DRUGS (21)
  1. CYTARABINE [Suspect]
     Active Substance: CYTARABINE
     Indication: Acute myeloid leukaemia
     Route: 024
     Dates: start: 20240305
  2. CYTARABINE [Suspect]
     Active Substance: CYTARABINE
     Route: 024
     Dates: start: 20240328, end: 20240329
  3. CYTARABINE [Suspect]
     Active Substance: CYTARABINE
     Route: 042
     Dates: start: 20240328, end: 20240407
  4. CYTARABINE [Suspect]
     Active Substance: CYTARABINE
     Route: 024
     Dates: start: 20240503, end: 20240504
  5. CYTARABINE [Suspect]
     Active Substance: CYTARABINE
     Route: 024
     Dates: start: 20240624, end: 20240625
  6. CYTARABINE [Suspect]
     Active Substance: CYTARABINE
     Route: 042
     Dates: start: 20240624
  7. GEMTUZUMAB OZOGAMICIN [Suspect]
     Active Substance: GEMTUZUMAB OZOGAMICIN
     Indication: Acute myeloid leukaemia
     Route: 042
     Dates: start: 20240405, end: 20240406
  8. MITOXANTRONE HYDROCHLORIDE [Suspect]
     Active Substance: MITOXANTRONE HYDROCHLORIDE
     Indication: Acute myeloid leukaemia
     Route: 042
     Dates: start: 20240328, end: 20240401
  9. ONDANSETRON [Concomitant]
     Active Substance: ONDANSETRON
     Dosage: UNK, 3X/DAY, 1-1-1
     Route: 042
  10. ERYNJA [Concomitant]
     Dosage: UNK, 1X/DAY, 0-0-1
     Route: 048
  11. ACETAMINOPHEN [Concomitant]
     Active Substance: ACETAMINOPHEN
     Route: 042
  12. POLARAMINE [Concomitant]
     Active Substance: DEXCHLORPHENIRAMINE MALEATE
     Route: 042
  13. PIPERACILLIN SODIUM AND TAZOBACTAM SODIUM PANPHARMA [Concomitant]
     Dosage: UNK UNK, 3X/DAY, 1-1-1
     Route: 042
  14. AMBISOME [Concomitant]
     Active Substance: AMPHOTERICIN B
     Dosage: 200 MG, 1X/DAY, (POWDER FOR SUSPENSION FOR LIPOSOME FOR INFUSION) AT 17
  15. COTRIMOXAZOLE [Concomitant]
     Active Substance: SULFAMETHOXAZOLE\TRIMETHOPRIM
     Dosage: UNK, 1X/DAY, 1-0-0
     Route: 048
  16. OMEPRAZOLE [Concomitant]
     Active Substance: OMEPRAZOLE
     Dosage: UNK, 1X/DAY, 0-0-2
     Route: 048
  17. FUNGIZONE [Concomitant]
     Active Substance: AMPHOTERICIN B
     Dosage: 5 ML, 3X/DAY, MORNING, NOON AND EVENING
     Route: 048
  18. TRANEXAMIC ACID [Concomitant]
     Active Substance: TRANEXAMIC ACID
     Dosage: UNK, 3X/DAY, 1-1-1
     Route: 048
  19. METOCLOPRAMIDE [Concomitant]
     Active Substance: METOCLOPRAMIDE
     Route: 042
  20. FUROSEMIDE [Concomitant]
     Active Substance: FUROSEMIDE
     Dosage: UNK, 1X/DAY, 0-1-0
     Route: 042
  21. NALBUPHINE HYDROCHLORIDE [Concomitant]
     Active Substance: NALBUPHINE HYDROCHLORIDE

REACTIONS (3)
  - Fungal infection [Recovered/Resolved]
  - Pneumonia fungal [Recovered/Resolved]
  - Fungal abscess central nervous system [Recovered/Resolved]

NARRATIVE: CASE EVENT DATE: 20240412
